FAERS Safety Report 21695483 (Version 1)
Quarter: 2022Q4

REPORT INFORMATION
  Report Type: Spontaneous
  Country: US (occurrence: None)
  Receive Date: 20221207
  Receipt Date: 20221207
  Transmission Date: 20230113
  Serious: No
  Sender: FDA-Public Use
  Company Number: None

PATIENT
  Sex: Female

DRUGS (2)
  1. ARISTADA [Suspect]
     Active Substance: ARIPIPRAZOLE LAUROXIL
  2. ARISTADA [Concomitant]
     Active Substance: ARIPIPRAZOLE LAUROXIL

REACTIONS (18)
  - Dry mouth [None]
  - Somnolence [None]
  - Somnolence [None]
  - Drooling [None]
  - Tremor [None]
  - Dysphagia [None]
  - Restlessness [None]
  - Photophobia [None]
  - Constipation [None]
  - Eructation [None]
  - Eructation [None]
  - Abdominal distension [None]
  - Peripheral swelling [None]
  - Pain [None]
  - Dry throat [None]
  - Dysphonia [None]
  - Arthralgia [None]
  - Insomnia [None]
